FAERS Safety Report 12157681 (Version 1)
Quarter: 2016Q1

REPORT INFORMATION
  Report Type: Spontaneous
  Country: None (occurrence: None)
  Receive Date: 20160307
  Receipt Date: 20160307
  Transmission Date: 20160526
  Serious: No
  Sender: FDA-Public Use
  Company Number: None

PATIENT
  Age: 28 Year
  Sex: Female
  Weight: 51.71 kg

DRUGS (4)
  1. OMEPRAZOLE. [Concomitant]
     Active Substance: OMEPRAZOLE
  2. HYDROXYZINE HCL [Concomitant]
     Active Substance: HYDROXYZINE HYDROCHLORIDE
  3. NUVIGIL [Suspect]
     Active Substance: ARMODAFINIL
     Indication: NARCOLEPSY
     Dosage: 1 PILL IN THE MORNING
     Route: 048
     Dates: start: 20160223, end: 20160227
  4. ADVIL [Concomitant]
     Active Substance: IBUPROFEN

REACTIONS (8)
  - Headache [None]
  - Nausea [None]
  - Migraine [None]
  - Insomnia [None]
  - Dizziness [None]
  - Dyspnoea [None]
  - Feeling hot [None]
  - Photophobia [None]

NARRATIVE: CASE EVENT DATE: 20160226
